FAERS Safety Report 25628248 (Version 1)
Quarter: 2025Q3

REPORT INFORMATION
  Report Type: Spontaneous
  Country: GB (occurrence: GB)
  Receive Date: 20250731
  Receipt Date: 20250731
  Transmission Date: 20251021
  Serious: Yes (Disabling, Other)
  Sender: ELI LILLY AND COMPANY
  Company Number: None

PATIENT
  Age: 64 Year
  Sex: Female
  Weight: 101 kg

DRUGS (1)
  1. MOUNJARO [Suspect]
     Active Substance: TIRZEPATIDE
     Indication: Weight control
     Route: 065
     Dates: start: 20250630

REACTIONS (4)
  - Depressed mood [Not Recovered/Not Resolved]
  - Nausea [Recovered/Resolved with Sequelae]
  - Intentional device misuse [Unknown]
  - Dehydration [Unknown]

NARRATIVE: CASE EVENT DATE: 20250707
